FAERS Safety Report 6220748-6 (Version None)
Quarter: 2009Q2

REPORT INFORMATION
  Report Type: 
  Country: None (occurrence: None)
  Receive Date: 20090610
  Receipt Date: 20090602
  Transmission Date: 20091009
  Serious: Yes (Other)
  Sender: FDA-Public Use
  Company Number: PHHY2009GB22228

PATIENT
  Sex: Female

DRUGS (2)
  1. ESTRADERM [Suspect]
     Indication: HORMONE REPLACEMENT THERAPY
     Dosage: 37.5MG
  2. ESTRADERM [Suspect]

REACTIONS (5)
  - BREAST CYST [None]
  - MALAISE [None]
  - MIGRAINE [None]
  - TOOTHACHE [None]
  - VISUAL IMPAIRMENT [None]
